FAERS Safety Report 7819372-0 (Version None)
Quarter: 2011Q4

REPORT INFORMATION
  Report Type: 
  Country: None (occurrence: None)
  Receive Date: 20111018
  Receipt Date: 20110318
  Transmission Date: 20120403
  Serious: No
  Sender: FDA-Public Use
  Company Number: US-ASTRAZENECA-2011SE15378

PATIENT
  Age: 66 Year
  Sex: Male

DRUGS (4)
  1. SYMBICORT [Suspect]
     Indication: CHRONIC OBSTRUCTIVE PULMONARY DISEASE
     Dosage: 160/4.5 TWO PUFFS TWICE DAILY
     Route: 055
     Dates: start: 20110301
  2. PREDNISONE [Concomitant]
  3. METFORMIN HYDROCHLORIDE [Concomitant]
  4. GLIPIZIDE [Concomitant]

REACTIONS (3)
  - DIZZINESS [None]
  - FALL [None]
  - NAUSEA [None]
